FAERS Safety Report 4309690-5 (Version None)
Quarter: 2004Q1

REPORT INFORMATION
  Report Type: 
  Country: None (occurrence: None)
  Receive Date: 20040302
  Receipt Date: 20040223
  Transmission Date: 20041129
  Serious: No
  Sender: FDA-Public Use
  Company Number: 2004UW03140

PATIENT
  Age: 72 Year
  Sex: Male

DRUGS (1)
  1. TOPROL-XL [Suspect]
     Indication: ARRHYTHMIA SUPRAVENTRICULAR
     Dosage: 25 MG DAILY PO
     Route: 048
     Dates: start: 20031009

REACTIONS (4)
  - BLOOD CREATINE INCREASED [None]
  - BLOOD POTASSIUM INCREASED [None]
  - BLOOD UREA INCREASED [None]
  - DEHYDRATION [None]
